FAERS Safety Report 4788642-5 (Version None)
Quarter: 2005Q4

REPORT INFORMATION
  Report Type: 
  Country: None (occurrence: None)
  Receive Date: 20051005
  Receipt Date: 20050913
  Transmission Date: 20060501
  Serious: Yes (Hospitalization)
  Sender: FDA-Public Use
  Company Number: GR-GLAXOSMITHKLINE-B0394710A

PATIENT
  Age: 78 Year
  Sex: Female

DRUGS (5)
  1. DIGOXIN [Suspect]
     Dosage: .25MG PER DAY
     Route: 065
  2. AMILORIDE HCL [Suspect]
     Dosage: 5MG PER DAY
  3. SPIRONOLACTONE [Suspect]
     Dosage: 50MG PER DAY
  4. ENALAPRIL [Concomitant]
     Dosage: 20MG PER DAY
  5. HYDROCHLOROTHIAZIDE [Concomitant]
     Dosage: 50MG PER DAY

REACTIONS (11)
  - ATRIAL FIBRILLATION [None]
  - BLOOD GLUCOSE INCREASED [None]
  - BRADYCARDIA [None]
  - CARDIAC MURMUR [None]
  - DEHYDRATION [None]
  - HYPERKALAEMIA [None]
  - HYPONATRAEMIA [None]
  - RENAL FAILURE CHRONIC [None]
  - SYNCOPE [None]
  - TACHYCARDIA [None]
  - THERAPEUTIC AGENT TOXICITY [None]
